FAERS Safety Report 13814344 (Version 1)
Quarter: 2017Q3

REPORT INFORMATION
  Report Type: Spontaneous
  Country: US (occurrence: US)
  Receive Date: 20170731
  Receipt Date: 20170731
  Transmission Date: 20171127
  Serious: Yes (Hospitalization, Other)
  Sender: FDA-Public Use
  Company Number: US-ROCHE-1967612

PATIENT
  Sex: Female
  Weight: 72.64 kg

DRUGS (4)
  1. PERJETA [Suspect]
     Active Substance: PERTUZUMAB
     Indication: PRODUCT USED FOR UNKNOWN INDICATION
     Dosage: ONGOING: UNKNOWN
     Route: 065
     Dates: start: 2016
  2. CARBOPLATIN. [Concomitant]
     Active Substance: CARBOPLATIN
     Dosage: ONGOING: UNKNOWN
     Route: 065
     Dates: start: 2016
  3. HERCEPTIN [Suspect]
     Active Substance: TRASTUZUMAB
     Indication: PRODUCT USED FOR UNKNOWN INDICATION
     Dosage: ONGOING: UNKNOWN
     Route: 065
     Dates: start: 2016
  4. DOCETAXEL. [Concomitant]
     Active Substance: DOCETAXEL
     Dosage: ONGOING: UNKNOWN
     Route: 065
     Dates: start: 2016

REACTIONS (7)
  - Blood potassium abnormal [Unknown]
  - Blood calcium abnormal [Unknown]
  - Tachycardia [Unknown]
  - Thrombocytopenia [Unknown]
  - Pneumonia [Unknown]
  - Blood magnesium abnormal [Unknown]
  - Anaemia [Unknown]

NARRATIVE: CASE EVENT DATE: 2016
